FAERS Safety Report 7626871-3 (Version None)
Quarter: 2011Q3

REPORT INFORMATION
  Report Type: 
  Country: None (occurrence: None)
  Receive Date: 20110721
  Receipt Date: 20110715
  Transmission Date: 20111222
  Serious: Yes (Other)
  Sender: FDA-Public Use
  Company Number: BR-SANOFI-AVENTIS-2011SA045539

PATIENT
  Sex: Female
  Weight: 45 kg

DRUGS (7)
  1. APIDRA [Suspect]
  2. SIMVASTATIN [Concomitant]
     Route: 048
  3. CLONAZEPAM [Concomitant]
     Indication: INSOMNIA
     Dates: start: 20090101
  4. FUROSEMIDE [Concomitant]
     Route: 048
     Dates: start: 20110101
  5. ALL OTHER THERAPEUTIC PRODUCTS [Concomitant]
     Indication: PAIN
     Route: 048
     Dates: start: 20110101
  6. LANTUS [Suspect]
     Indication: TYPE 2 DIABETES MELLITUS
     Route: 058
  7. LOSARTAN POTASSIUM [Concomitant]
     Indication: RENAL DISORDER
     Route: 048

REACTIONS (5)
  - BLINDNESS UNILATERAL [None]
  - VISUAL ACUITY REDUCED [None]
  - DIABETIC RETINOPATHY [None]
  - CATARACT [None]
  - HYPERGLYCAEMIA [None]
